FAERS Safety Report 15679503 (Version 1)
Quarter: 2018Q4

REPORT INFORMATION
  Report Type: Spontaneous
  Country: FR (occurrence: FR)
  Receive Date: 20181203
  Receipt Date: 20181203
  Transmission Date: 20190205
  Serious: Yes (Hospitalization)
  Sender: FDA-Public Use
  Company Number: FR-AUROBINDO-AUR-APL-2018-057855

PATIENT
  Age: 55 Year
  Sex: Male
  Weight: 115.4 kg

DRUGS (2)
  1. SYNACTHENE RETARD [Suspect]
     Active Substance: COSYNTROPIN
     Indication: NECK PAIN
     Dosage: 1 DOSAGE FORM, ONCE A DAY
     Route: 030
     Dates: start: 20180904, end: 20180905
  2. IBUPROFEN. [Suspect]
     Active Substance: IBUPROFEN
     Indication: NECK PAIN
     Dosage: UNK
     Route: 048
     Dates: start: 20180904, end: 20180906

REACTIONS (1)
  - Adrenal haematoma [Recovering/Resolving]

NARRATIVE: CASE EVENT DATE: 20180906
